FAERS Safety Report 10060330 (Version 2)
Quarter: 2014Q2

REPORT INFORMATION
  Report Type: Spontaneous
  Country: DE (occurrence: DE)
  Receive Date: 20140404
  Receipt Date: 20140425
  Transmission Date: 20141212
  Serious: Yes (Other)
  Sender: FDA-Public Use
  Company Number: DE-BIOMARINAP-DE-2014-102905

PATIENT
  Age: 0 Day
  Sex: Male
  Weight: 2.27 kg

DRUGS (1)
  1. NAGLAZYME [Suspect]
     Indication: MUCOPOLYSACCHARIDOSIS VI
     Dosage: 40 MG, QW
     Route: 064
     Dates: start: 20060213

REACTIONS (1)
  - Hypoglycaemia [Recovered/Resolved]
